FAERS Safety Report 7231009-0 (Version None)
Quarter: 2011Q1

REPORT INFORMATION
  Report Type: 
  Country: None (occurrence: None)
  Receive Date: 20110118
  Receipt Date: 20110113
  Transmission Date: 20110831
  Serious: Yes (Other)
  Sender: FDA-Public Use
  Company Number: DE-BRISTOL-MYERS SQUIBB COMPANY-15486566

PATIENT
  Age: 60 Year

DRUGS (1)
  1. ONGLYZA [Suspect]

REACTIONS (1)
  - NEOPLASM MALIGNANT [None]
